FAERS Safety Report 5429298-8 (Version None)
Quarter: 2007Q3

REPORT INFORMATION
  Report Type: 
  Country: None (occurrence: None)
  Receive Date: 20070827
  Receipt Date: 20070810
  Transmission Date: 20080115
  Serious: Yes (Death)
  Sender: FDA-Public Use
  Company Number: 2007US001975

PATIENT
  Age: 70 Year
  Sex: Male

DRUGS (6)
  1. AMBISOME [Suspect]
     Indication: FEBRILE NEUTROPENIA
     Dosage: 150 MG, UID/QD, IV DRIP
     Route: 041
     Dates: start: 20070413, end: 20070420
  2. MAXIPIME [Concomitant]
  3. IMMUNE GLOBULIN INTRAVENOUS (HUMAN) [Concomitant]
  4. PLATELETS [Concomitant]
  5. RED BLOOD CELLS [Concomitant]
  6. OMEGACIN (BIAPENEM) [Concomitant]

REACTIONS (1)
  - DEATH [None]
